FAERS Safety Report 10985802 (Version 1)
Quarter: 2015Q1

REPORT INFORMATION
  Report Type: Spontaneous
  Country: US (occurrence: None)
  Receive Date: 20150324
  Receipt Date: 20150324
  Transmission Date: 20150721
  Serious: Yes (Other)
  Sender: FDA-Public Use
  Company Number: 2014STPI000251

PATIENT
  Age: 2 Year
  Sex: Female

DRUGS (4)
  1. RANTIDINE (RANITIDINE HYDROCHLORIDE) [Concomitant]
  2. DIPHENHYDRAMINE (DIPHENHYDRAMINE HYDROCHLORIDE) (UNKNOWN) (DIPHENHYDRAMINE HYDROCHLORIDE) [Concomitant]
     Active Substance: DIPHENHYDRAMINE
  3. ONCASPAR [Suspect]
     Active Substance: PEGASPARGASE
     Indication: LYMPHOCYTIC LEUKAEMIA
     Route: 042
     Dates: start: 20140224, end: 20140224
  4. METHYLPREDNISOLONE (METHYLPREDNISOLONE) [Concomitant]
     Active Substance: METHYLPREDNISOLONE

REACTIONS (1)
  - Hypersensitivity [None]

NARRATIVE: CASE EVENT DATE: 20140422
